FAERS Safety Report 6256181-0 (Version None)
Quarter: 2009Q3

REPORT INFORMATION
  Report Type: 
  Country: None (occurrence: None)
  Receive Date: 20090706
  Receipt Date: 20090625
  Transmission Date: 20100115
  Serious: Yes (Other)
  Sender: FDA-Public Use
  Company Number: PHEH2008US06051

PATIENT
  Sex: Female

DRUGS (6)
  1. ESTRADERM [Suspect]
     Dosage: UNK
     Route: 062
     Dates: start: 19940509, end: 19940804
  2. PROVERA [Suspect]
     Dosage: UNK
     Dates: start: 19940509, end: 19951001
  3. PROVERA [Suspect]
     Dosage: UNK
     Dates: start: 19970513, end: 19991101
  4. PREMARIN [Suspect]
     Dosage: UNK
     Dates: start: 19940804, end: 19951001
  5. PREMPRO [Suspect]
     Dosage: UNK
     Dates: start: 19951001, end: 19970513
  6. ESTRACE [Suspect]
     Dosage: UNK
     Dates: start: 19970513, end: 19991101

REACTIONS (15)
  - ABDOMINAL PAIN [None]
  - BREAST CANCER [None]
  - BREAST LUMP REMOVAL [None]
  - BREAST SWELLING [None]
  - DIVERTICULUM [None]
  - DYSPNOEA [None]
  - GALLBLADDER OPERATION [None]
  - GASTROOESOPHAGEAL REFLUX DISEASE [None]
  - OEDEMA PERIPHERAL [None]
  - PAIN [None]
  - RADIOTHERAPY [None]
  - STRESS [None]
  - UTERINE LEIOMYOMA [None]
  - VAGINAL HAEMORRHAGE [None]
  - WEIGHT INCREASED [None]
